FAERS Safety Report 9011562 (Version 1)
Quarter: 2013Q1

REPORT INFORMATION
  Report Type: Spontaneous
  Country: US (occurrence: US)
  Receive Date: 20130108
  Receipt Date: 20130108
  Transmission Date: 20140127
  Serious: Yes (Other)
  Sender: FDA-Public Use
  Company Number: US-ELI_LILLY_AND_COMPANY-US201301000285

PATIENT
  Age: 49 Year
  Sex: Male

DRUGS (2)
  1. CIALIS [Suspect]
     Indication: ERECTILE DYSFUNCTION
     Dosage: 20 MG, PRN
     Dates: start: 20121229, end: 20121230
  2. ALCOHOL [Concomitant]

REACTIONS (8)
  - Vision blurred [Unknown]
  - Burning sensation [Not Recovered/Not Resolved]
  - Fatigue [Unknown]
  - Flushing [Unknown]
  - Dyspepsia [Recovered/Resolved]
  - Back pain [Recovering/Resolving]
  - Overdose [Recovered/Resolved]
  - Drug prescribing error [Recovered/Resolved]
